FAERS Safety Report 13576720 (Version 1)
Quarter: 2017Q2

REPORT INFORMATION
  Report Type: Spontaneous
  Country: US (occurrence: US)
  Receive Date: 20170524
  Receipt Date: 20170524
  Transmission Date: 20170830
  Serious: Yes (Other)
  Sender: FDA-Public Use
  Company Number: US-GLAXOSMITHKLINE-US2017075216

PATIENT
  Sex: Female

DRUGS (3)
  1. RYTHMOL [Suspect]
     Active Substance: PROPAFENONE HYDROCHLORIDE
     Indication: PRODUCT USED FOR UNKNOWN INDICATION
     Dosage: 425 MG, BID
  2. TIKOSYN [Concomitant]
     Active Substance: DOFETILIDE
  3. PROPAFENONE HYDROCHLORIDE. [Suspect]
     Active Substance: PROPAFENONE HYDROCHLORIDE
     Indication: PRODUCT USED FOR UNKNOWN INDICATION
     Dosage: 425 MG, BID

REACTIONS (4)
  - Atrial fibrillation [Unknown]
  - Cardiac ablation [Unknown]
  - Overdose [Unknown]
  - Inappropriate schedule of drug administration [Unknown]
